FAERS Safety Report 5565075-5 (Version None)
Quarter: 2007Q4

REPORT INFORMATION
  Report Type: 
  Country: None (occurrence: None)
  Receive Date: 20071218
  Receipt Date: 20071214
  Transmission Date: 20080405
  Serious: Yes (Hospitalization)
  Sender: FDA-Public Use
  Company Number: NL-ASTRAZENECA-2007AC02468

PATIENT
  Age: 24650 Day
  Sex: Female

DRUGS (2)
  1. CRESTOR [Suspect]
     Indication: PROPHYLAXIS
     Route: 048
     Dates: end: 20071206
  2. ASCAL LIKE MEDICATION [Concomitant]

REACTIONS (3)
  - ARTHROPATHY [None]
  - MYALGIA [None]
  - PYREXIA [None]
